FAERS Safety Report 8206448-1 (Version None)
Quarter: 2012Q1

REPORT INFORMATION
  Report Type: 
  Country: None (occurrence: None)
  Receive Date: 20120313
  Receipt Date: 20120309
  Transmission Date: 20120608
  Serious: Yes (Other)
  Sender: FDA-Public Use
  Company Number: PHHY2012JP021470

PATIENT
  Age: 66 Year
  Sex: Female

DRUGS (2)
  1. DIOVAN [Suspect]
     Indication: HYPERTENSION
     Dosage: 80 MG, ONCE IN THE EVENING
     Route: 048
  2. DIOVAN [Suspect]
     Dosage: 80 MG, ONCE IN THE MORNING
     Route: 048
     Dates: start: 20120101

REACTIONS (2)
  - URINARY TRACT INFECTION [None]
  - NOCTURIA [None]
